FAERS Safety Report 24103989 (Version 1)
Quarter: 2024Q3

REPORT INFORMATION
  Report Type: Spontaneous
  Country: BE (occurrence: BE)
  Receive Date: 20240717
  Receipt Date: 20240717
  Transmission Date: 20241016
  Serious: Yes (Death, Life-Threatening, Hospitalization)
  Sender: STRIDES
  Company Number: BE-STRIDES ARCOLAB LIMITED-2024SP008699

PATIENT
  Age: 58 Year
  Sex: Male

DRUGS (12)
  1. ETOPOSIDE [Suspect]
     Active Substance: ETOPOSIDE
     Indication: Haemophagocytic lymphohistiocytosis
     Dosage: UNK
     Route: 065
     Dates: start: 2023
  2. DEXAMETHASONE [Suspect]
     Active Substance: DEXAMETHASONE
     Indication: Haemophagocytic lymphohistiocytosis
     Dosage: 10 MILLIGRAM/SQ. METER
     Route: 065
     Dates: start: 2023
  3. CISPLATIN [Suspect]
     Active Substance: CISPLATIN
     Indication: Transitional cell carcinoma
     Dosage: UNK
     Route: 065
     Dates: start: 202110, end: 202201
  4. GEMCITABINE [Suspect]
     Active Substance: GEMCITABINE
     Indication: Transitional cell carcinoma
     Dosage: UNK
     Route: 065
     Dates: start: 202110, end: 202201
  5. PEMBROLIZUMAB [Suspect]
     Active Substance: PEMBROLIZUMAB
     Indication: Transitional cell carcinoma
     Dosage: UNK
     Route: 065
     Dates: start: 202208, end: 202304
  6. ENFORTUMAB VEDOTIN [Suspect]
     Active Substance: ENFORTUMAB VEDOTIN
     Indication: Transitional cell carcinoma
     Dosage: UNK
     Route: 065
     Dates: start: 202305
  7. PIOGLITAZONE [Concomitant]
     Active Substance: PIOGLITAZONE
     Indication: Diabetes mellitus
     Dosage: UNK
     Route: 065
     Dates: start: 2023
  8. INSULIN NOS [Concomitant]
     Active Substance: INSULIN NOS
     Indication: Diabetes mellitus
     Dosage: UNK, RECEIVED 800 UNITS, QD
     Route: 042
     Dates: start: 2023
  9. PIPERACILLIN AND TAZOBACTAM [Concomitant]
     Active Substance: PIPERACILLIN SODIUM\TAZOBACTAM SODIUM
     Indication: Evidence based treatment
     Dosage: UNK
     Route: 065
     Dates: start: 2023
  10. VANCOMYCIN [Concomitant]
     Active Substance: VANCOMYCIN
     Indication: Evidence based treatment
     Dosage: UNK
     Route: 065
     Dates: start: 2023
  11. MEROPENEM [Concomitant]
     Active Substance: MEROPENEM
     Indication: Evidence based treatment
     Dosage: UNK
     Route: 065
     Dates: start: 2023
  12. VORICONAZOLE [Concomitant]
     Active Substance: VORICONAZOLE
     Indication: Evidence based treatment
     Dosage: UNK
     Route: 065
     Dates: start: 2023

REACTIONS (5)
  - Septic shock [Fatal]
  - Pancytopenia [Unknown]
  - Thrombocytopenia [Unknown]
  - Herpes simplex [Unknown]
  - Off label use [Unknown]

NARRATIVE: CASE EVENT DATE: 20230101
